FAERS Safety Report 8512909 (Version 5)
Quarter: 2012Q4

REPORT INFORMATION
  Report Type: 
  Country: US (occurrence: US)
  Receive Date: 20120413
  Receipt Date: 20121005
  Transmission Date: 20130627
  Serious: No
  Sender: FDA-Public Use
  Company Number: US-ASTRAZENECA-2012SE10285

PATIENT
  Age: 48 Year
  Sex: Female

DRUGS (1)
  1. NEXIUM [Suspect]
     Route: 048

REACTIONS (13)
  - Irritable bowel syndrome [Unknown]
  - Gastrooesophageal reflux disease [Unknown]
  - Gastrooesophageal reflux disease [Unknown]
  - Aphagia [Unknown]
  - Weight decreased [Unknown]
  - Mental disorder [Unknown]
  - Ulcer [Unknown]
  - Fibromyalgia [Unknown]
  - Dysphagia [Unknown]
  - Dyspepsia [Unknown]
  - Gastric disorder [Unknown]
  - Abdominal discomfort [Unknown]
  - Drug dose omission [Unknown]
